FAERS Safety Report 21663568 (Version 2)
Quarter: 2022Q4

REPORT INFORMATION
  Report Type: Report from Study
  Country: MX (occurrence: MX)
  Receive Date: 20221130
  Receipt Date: 20221209
  Transmission Date: 20230113
  Serious: Yes (Hospitalization, Other)
  Sender: FDA-Public Use
  Company Number: MX-002147023-NVSC2022MX277296

PATIENT
  Age: 68 Year
  Sex: Female
  Weight: 49 kg

DRUGS (10)
  1. ACLASTA [Suspect]
     Active Substance: ZOLEDRONIC ACID
     Indication: Prophylaxis
     Dosage: 5 MG, Q12MO
     Route: 058
     Dates: start: 2006, end: 2016
  2. ACLASTA [Suspect]
     Active Substance: ZOLEDRONIC ACID
     Indication: Osteopenia
     Dosage: 1 DOSAGE FORM, Q12MO
     Route: 042
     Dates: start: 202211
  3. INSULIN NOS [Suspect]
     Active Substance: INSULIN NOS
     Indication: Blood glucose abnormal
     Dosage: UNK
     Route: 058
     Dates: start: 2016, end: 2016
  4. INSULIN NOS [Suspect]
     Active Substance: INSULIN NOS
     Indication: Diabetes mellitus
  5. AMARYL [Concomitant]
     Active Substance: GLIMEPIRIDE
     Indication: Diabetes mellitus
     Dosage: 1 DOSAGE FORM (2 MG), IN BREAKFAST AND IN MEAL
     Route: 048
     Dates: start: 2016
  6. INVOKANA [Concomitant]
     Active Substance: CANAGLIFLOZIN
     Indication: Diabetes mellitus
     Dosage: 1 DOSAGE FORM (300 MG), QD AT NIGHT
     Route: 048
     Dates: start: 2018
  7. JANUMET [Concomitant]
     Active Substance: METFORMIN HYDROCHLORIDE\SITAGLIPTIN PHOSPHATE
     Indication: Diabetes mellitus
     Dosage: 1 DOSAGE FORM, QD (DAILY) F (100 MG/1000 MG), AT NIGHT
     Route: 048
     Dates: start: 2016
  8. CALTRATE [Concomitant]
     Active Substance: CALCIUM CARBONATE
     Indication: Osteoporosis
     Dosage: 1 DOSAGE FORM (600 MG), QD
     Route: 048
  9. CALCIO MAGNESIO ZINC [Concomitant]
     Indication: Osteopenia
     Dosage: 1 DOSAGE FORM (!.53 MG), Q12H
     Route: 048
     Dates: start: 201909
  10. FOSAMAX [Concomitant]
     Active Substance: ALENDRONATE SODIUM
     Indication: Osteopenia
     Dosage: 1 DOSAGE FORM, QW
     Route: 048
     Dates: start: 201909, end: 202211

REACTIONS (12)
  - Blood glucose abnormal [Unknown]
  - Insulin resistance [Recovered/Resolved]
  - Thoracic vertebral fracture [Recovered/Resolved]
  - Neuropathy peripheral [Unknown]
  - Nerve injury [Unknown]
  - Bone disorder [Not Recovered/Not Resolved]
  - Stress [Unknown]
  - Nervous system disorder [Unknown]
  - Body height decreased [Not Recovered/Not Resolved]
  - Drug hypersensitivity [Unknown]
  - Product use in unapproved indication [Unknown]
  - Off label use [Unknown]

NARRATIVE: CASE EVENT DATE: 20161201
